FAERS Safety Report 5093035-X (Version None)
Quarter: 2006Q3

REPORT INFORMATION
  Report Type: 
  Country: None (occurrence: None)
  Receive Date: 20060830
  Receipt Date: 20060817
  Transmission Date: 20061208
  Serious: Yes (Other)
  Sender: FDA-Public Use
  Company Number: US-MERCK-0608USA04439

PATIENT
  Age: 40 Month
  Sex: Male
  Weight: 18 kg

DRUGS (2)
  1. SINGULAIR [Suspect]
     Indication: ASTHMA
     Route: 048
     Dates: start: 20060716, end: 20060814
  2. FLOVENT [Concomitant]
     Route: 055

REACTIONS (2)
  - ERYTHEMA MULTIFORME [None]
  - VASCULITIS [None]
